FAERS Safety Report 6506492-6 (Version None)
Quarter: 2009Q4

REPORT INFORMATION
  Report Type: 
  Country: None (occurrence: None)
  Receive Date: 20091216
  Receipt Date: 20091202
  Transmission Date: 20100525
  Serious: Yes (Hospitalization)
  Sender: FDA-Public Use
  Company Number: 2009-4830

PATIENT
  Age: 71 Year
  Sex: Male

DRUGS (8)
  1. APO-GO AMPOULES (APO-GO) (APOMORPHINE HYDROCHLORIDE) (APOMORPHINE HYDR [Suspect]
     Indication: FREEZING PHENOMENON
     Dates: start: 20090718, end: 20091003
  2. QUETIAPIEN (QUETIAPINE) [Concomitant]
  3. METFORMIN HCL [Concomitant]
  4. BISOPROLOL FUMARATE [Concomitant]
  5. ASPIRIN [Concomitant]
  6. SIMVASTATIN [Concomitant]
  7. APO-GO PEN (APOMORPHINE HYDROCHLORIDE) [Concomitant]
  8. SINEMET (SUNEMET) [Concomitant]

REACTIONS (2)
  - AGGRESSION [None]
  - PHYSICAL ASSAULT [None]
